FAERS Safety Report 8817971 (Version 1)
Quarter: 2012Q4

REPORT INFORMATION
  Report Type: 
  Country: SE (occurrence: SE)
  Receive Date: 20121001
  Receipt Date: 20121001
  Transmission Date: 20130627
  Serious: Yes (Hospitalization, Other)
  Sender: FDA-Public Use
  Company Number: SE-ABBOTT-12P-150-0963173-00

PATIENT
  Age: 77 Year
  Sex: Female

DRUGS (2)
  1. ISOPTIN [Suspect]
     Indication: ESSENTIAL HYPERTENSION
     Dates: start: 20120629, end: 20120710
  2. IPRATROPIUM BROMIDE AND SALBUTAMOL SULFATE [Concomitant]
     Indication: PRODUCT USED FOR UNKNOWN INDICATION

REACTIONS (1)
  - Rash generalised [Unknown]
